FAERS Safety Report 17557309 (Version 1)
Quarter: 2020Q1

REPORT INFORMATION
  Report Type: Spontaneous
  Country: CA (occurrence: CA)
  Receive Date: 20200318
  Receipt Date: 20200318
  Transmission Date: 20200409
  Serious: Yes (Other)
  Sender: FDA-Public Use
  Company Number: CA-SHIRE-CA202009400

PATIENT

DRUGS (1)
  1. GAMMAGARD LIQUID [Suspect]
     Active Substance: HUMAN IMMUNOGLOBULIN G
     Indication: ENCEPHALITIS AUTOIMMUNE
     Dosage: 20 MILLILITER ONCE
     Route: 042

REACTIONS (10)
  - Blood pressure systolic increased [Recovered/Resolved]
  - Hypoxia [Recovered/Resolved]
  - Brain natriuretic peptide increased [Recovered/Resolved]
  - Body temperature increased [Recovered/Resolved]
  - Cardiopulmonary failure [Recovered/Resolved]
  - Concomitant disease progression [Recovered/Resolved]
  - Troponin increased [Recovered/Resolved]
  - Myocardial strain [Recovered/Resolved]
  - Oxygen saturation decreased [Recovered/Resolved]
  - Intentional product use issue [Unknown]
